FAERS Safety Report 9322904 (Version 3)
Quarter: 2013Q3

REPORT INFORMATION
  Report Type: Spontaneous
  Country: US (occurrence: US)
  Receive Date: 20130602
  Receipt Date: 20130904
  Transmission Date: 20140515
  Serious: Yes (Hospitalization)
  Sender: FDA-Public Use
  Company Number: PHEH2013US009821

PATIENT
  Age: 29 Year
  Sex: Male

DRUGS (8)
  1. CLOZARIL [Suspect]
     Indication: SCHIZOAFFECTIVE DISORDER
     Dosage: UNK UKN, UNK
  2. CLOZARIL [Suspect]
     Dosage: HIGH DOSE
  3. CLOZARIL [Suspect]
     Dosage: 25 MG,
  4. CLONAZEPAM [Concomitant]
     Indication: SCHIZOAFFECTIVE DISORDER
     Dosage: 1 MG, QHS
  5. LITHIUM [Concomitant]
     Indication: SCHIZOAFFECTIVE DISORDER
     Dosage: 600 MG, QHS
  6. ESCITALOPRAM [Concomitant]
     Indication: SCHIZOAFFECTIVE DISORDER
     Dosage: 30 MG, QD
  7. ZONISAMIDE [Concomitant]
     Indication: COMPLEX PARTIAL SEIZURES
     Dosage: 7 DF, QD (3 IN AM AND 4 IN PM)
  8. LEVOTHYROXINE [Concomitant]
     Indication: HYPOTHYROIDISM
     Dosage: 100 UG, UNK

REACTIONS (4)
  - General physical health deterioration [Unknown]
  - Convulsion [Unknown]
  - Infection [Unknown]
  - White blood cell count increased [Unknown]
